FAERS Safety Report 7312588-1 (Version None)
Quarter: 2011Q1

REPORT INFORMATION
  Report Type: 
  Country: None (occurrence: None)
  Receive Date: 20110224
  Receipt Date: 20110221
  Transmission Date: 20110831
  Serious: Yes (Death)
  Sender: FDA-Public Use
  Company Number: PL-PFIZER INC-2010131736

PATIENT
  Age: 43 Year

DRUGS (4)
  1. METRONIDAZOLE [Suspect]
  2. UNASYN [Suspect]
  3. FLUCONAZOLE [Suspect]
  4. TYGACIL [Suspect]

REACTIONS (1)
  - DRUG INEFFECTIVE [None]
